FAERS Safety Report 6926380-0 (Version None)
Quarter: 2010Q3

REPORT INFORMATION
  Report Type: 
  Country: None (occurrence: None)
  Receive Date: 20100816
  Receipt Date: 20100802
  Transmission Date: 20110219
  Serious: Yes (Hospitalization, Other)
  Sender: FDA-Public Use
  Company Number: PHHY2010FR51340

PATIENT
  Sex: Female

DRUGS (7)
  1. SINTROM [Suspect]
     Dosage: UNK
     Dates: end: 20100529
  2. DICLOFENAC [Suspect]
     Dosage: 50 MG, BID
     Route: 048
     Dates: start: 20100521
  3. COZAAR [Concomitant]
     Indication: RENAL FAILURE CHRONIC
  4. DIOSMINE [Concomitant]
     Dosage: 600 MG DAILY
  5. LANZOR [Concomitant]
     Dosage: 40 MG
  6. VENOFER [Concomitant]
  7. HEPARIN CALCIUM [Concomitant]

REACTIONS (6)
  - ARTHRALGIA [None]
  - GASTROINTESTINAL HAEMORRHAGE [None]
  - INTERNATIONAL NORMALISED RATIO INCREASED [None]
  - IRON DEFICIENCY ANAEMIA [None]
  - OEDEMA PERIPHERAL [None]
  - RENAL FAILURE ACUTE [None]
